FAERS Safety Report 7528679-6 (Version None)
Quarter: 2011Q2

REPORT INFORMATION
  Report Type: 
  Country: None (occurrence: None)
  Receive Date: 20110607
  Receipt Date: 20110524
  Transmission Date: 20111010
  Serious: Yes (Other)
  Sender: FDA-Public Use
  Company Number: IT-JNJFOC-20110512004

PATIENT
  Age: 28 Year
  Sex: Female

DRUGS (1)
  1. REMICADE [Suspect]
     Indication: PSORIATIC ARTHROPATHY
     Route: 042
     Dates: start: 20040101, end: 20110519

REACTIONS (5)
  - HYPOTENSION [None]
  - DYSPNOEA [None]
  - INFUSION RELATED REACTION [None]
  - CONJUNCTIVAL HYPERAEMIA [None]
  - HYPOTHERMIA [None]
